FAERS Safety Report 15215849 (Version 1)
Quarter: 2018Q3

REPORT INFORMATION
  Report Type: Spontaneous
  Country: US (occurrence: US)
  Receive Date: 20180730
  Receipt Date: 20180730
  Transmission Date: 20181010
  Serious: Yes (Disabling)
  Sender: FDA-Public Use
  Company Number: US-PFIZER INC-2018298642

PATIENT
  Age: 29 Year
  Sex: Female
  Weight: 47.6 kg

DRUGS (28)
  1. BANZEL [Interacting]
     Active Substance: RUFINAMIDE
     Dosage: 2600 MG, DAILY (1200MG AM AND 1400 MG PM (2 IN 1D))
     Route: 048
     Dates: start: 20180503, end: 2018
  2. BANZEL [Interacting]
     Active Substance: RUFINAMIDE
     Dosage: 600 MG, 2X/DAY  (600 MG, 2 IN 1D)
     Route: 048
     Dates: start: 201805, end: 201806
  3. LEVOTHYROXINE SODIUM. [Concomitant]
     Active Substance: LEVOTHYROXINE SODIUM
     Indication: HYPOPITUITARISM
     Dosage: 187.5 UG, DAILY  (187.5MCG, 1 IN 1D)
  4. DEXAMETHASONE. [Concomitant]
     Active Substance: DEXAMETHASONE
     Indication: HYPOPITUITARISM
     Dosage: 0.3 MG, DAILY (0.3 MG, 1 IN 1D)
     Dates: end: 20180329
  5. BANZEL [Interacting]
     Active Substance: RUFINAMIDE
     Indication: LENNOX-GASTAUT SYNDROME
     Dosage: UNK
     Route: 048
     Dates: start: 201008
  6. BANZEL [Interacting]
     Active Substance: RUFINAMIDE
     Dosage: 3000 MG, DAILY (1400MG AM AND 1600MG PM (2 IN 1 D))
     Route: 048
     Dates: start: 20180430, end: 20180502
  7. KEPPRA [Concomitant]
     Active Substance: LEVETIRACETAM
     Indication: LENNOX-GASTAUT SYNDROME
     Dosage: 2000 MG, DAILY (1000 MG, 2 IN 1D)
     Route: 048
  8. LIDOCAINE. [Concomitant]
     Active Substance: LIDOCAINE
     Dosage: UNK
     Dates: start: 201803
  9. ONDANSETRON [Concomitant]
     Active Substance: ONDANSETRON
     Indication: PROPHYLAXIS OF NAUSEA AND VOMITING
     Dosage: UNK
     Dates: start: 20180330
  10. PROPOFOL. [Suspect]
     Active Substance: PROPOFOL
     Indication: ANAESTHESIA
     Dosage: UNK
     Dates: start: 20180330, end: 20180330
  11. SOLU?MEDROL [Concomitant]
     Active Substance: METHYLPREDNISOLONE SODIUM SUCCINATE
     Dosage: UNK
     Dates: start: 201803
  12. TOPAMAX [Concomitant]
     Active Substance: TOPIRAMATE
     Indication: LENNOX-GASTAUT SYNDROME
     Dosage: 350 MG, DAILY(175 MG, 2 IN 1 D)
     Route: 048
  13. BANZEL [Interacting]
     Active Substance: RUFINAMIDE
     Dosage: 1200 MG, 2X/DAY (1200 MG, 2 IN 1D)
     Route: 048
     Dates: start: 201805, end: 201805
  14. EPIDIOLEX [Concomitant]
     Active Substance: CANNABIDIOL
     Dosage: 440 MG, DAILY (220 MG, IN 1 D)
     Dates: start: 20180703
  15. PROGESTERONE. [Concomitant]
     Active Substance: PROGESTERONE
     Indication: HYPOPITUITARISM
     Dosage: 200 MG, CYCLIC (DAILY FOR DAY 1?12 OF EACH MONTH)
  16. BANZEL [Interacting]
     Active Substance: RUFINAMIDE
     Dosage: 400 MG, 2X/DAY (400 MG, 2 IN 1D)
     Route: 048
     Dates: start: 2018
  17. ROCURONIUM BROMIDE. [Interacting]
     Active Substance: ROCURONIUM BROMIDE
     Indication: ANAESTHESIA
     Dosage: UNK
     Dates: start: 20180330, end: 20180330
  18. SEVOFLURANE. [Interacting]
     Active Substance: SEVOFLURANE
     Indication: ANAESTHESIA
     Dosage: UNK
     Dates: start: 20180330, end: 20180330
  19. SOMATROPIN. [Concomitant]
     Active Substance: SOMATROPIN
     Indication: HYPOPITUITARISM
     Dosage: 0.8 MG, DAILY (0.8MG, 1 IN 1D)
     Route: 058
  20. DEXAMETHASONE. [Concomitant]
     Active Substance: DEXAMETHASONE
     Dosage: 0.9 MG, DAILY (0.9MG, 1 IN 1D)
     Dates: start: 20180330, end: 2018
  21. BANZEL [Interacting]
     Active Substance: RUFINAMIDE
     Indication: SEIZURE
     Dosage: 3400 MG, DAILY(16AM AND 1800MG PM (2 IN 1D)
     Route: 048
     Dates: end: 20180429
  22. BANZEL [Interacting]
     Active Substance: RUFINAMIDE
     Dosage: 1000 MG, DAILY (400 MG AM AND 600 MG PM (2 IN 1D))
     Route: 048
     Dates: start: 201806, end: 2018
  23. HALOPERIDOL. [Concomitant]
     Active Substance: HALOPERIDOL
     Indication: PROPHYLAXIS OF NAUSEA AND VOMITING
     Dosage: UNK
     Dates: start: 20180330
  24. EPIDIOLEX [Concomitant]
     Active Substance: CANNABIDIOL
     Indication: LENNOX-GASTAUT SYNDROME
     Dosage: 520 MG, DAILY (260 MG, 2 IN 1 D)
     Dates: end: 20180702
  25. DEXAMETHASONE. [Concomitant]
     Active Substance: DEXAMETHASONE
     Dosage: 0.3 MG, DAILY (0.3MG, 1 IN 1D)
     Dates: start: 2018
  26. ESTRADIOL. [Concomitant]
     Active Substance: ESTRADIOL
     Indication: HYPOPITUITARISM
     Dosage: 0.075 MG, DAILY (0.075MG, 1 IN 24 HR)
  27. LANSOPRAZOLE. [Concomitant]
     Active Substance: LANSOPRAZOLE
     Indication: IMPAIRED GASTRIC EMPTYING
     Dosage: 30 MG, DAILY (30 MG, 1 IN 1 D)
  28. ONFI [Concomitant]
     Active Substance: CLOBAZAM
     Dosage: UNK
     Dates: start: 20180703

REACTIONS (10)
  - Impaired gastric emptying [Recovering/Resolving]
  - Asthenia [Unknown]
  - Gastrointestinal motility disorder [Recovering/Resolving]
  - Weight decreased [Recovering/Resolving]
  - Vomiting [Recovering/Resolving]
  - Anticonvulsant drug level increased [Recovering/Resolving]
  - Drug interaction [Unknown]
  - Nausea [Recovering/Resolving]
  - Decreased appetite [Recovering/Resolving]
  - Flatulence [Unknown]

NARRATIVE: CASE EVENT DATE: 2011
